FAERS Safety Report 20329371 (Version 1)
Quarter: 2022Q1

REPORT INFORMATION
  Report Type: Spontaneous
  Country: US (occurrence: None)
  Receive Date: 20220112
  Receipt Date: 20220112
  Transmission Date: 20220423
  Serious: Yes (Other)
  Sender: FDA-Public Use
  Company Number: None

PATIENT
  Age: 57 Year
  Sex: Female

DRUGS (2)
  1. AMBRISENTAN [Suspect]
     Active Substance: AMBRISENTAN
     Indication: Pulmonary arterial hypertension
     Dosage: FREQUENCY : DAILY;?
     Route: 048
  2. SILDENAFIL [Concomitant]
     Active Substance: SILDENAFIL

REACTIONS (6)
  - Malaise [None]
  - Ageusia [None]
  - Anosmia [None]
  - Diarrhoea [None]
  - Pain [None]
  - SARS-CoV-2 test negative [None]

NARRATIVE: CASE EVENT DATE: 20220112
